FAERS Safety Report 11467401 (Version 1)
Quarter: 2015Q3

REPORT INFORMATION
  Report Type: Spontaneous
  Country: US (occurrence: US)
  Receive Date: 20150908
  Receipt Date: 20150908
  Transmission Date: 20151125
  Serious: No
  Sender: FDA-Public Use
  Company Number: US-ASTRAZENECA-2014SE09258

PATIENT
  Age: 49 Year
  Sex: Male
  Weight: 108.8 kg

DRUGS (5)
  1. BYDUREON [Suspect]
     Active Substance: EXENATIDE
     Indication: TYPE 2 DIABETES MELLITUS
     Dosage: ONCE A WEEK
     Route: 058
     Dates: start: 20140126
  2. HUMALOG [Concomitant]
     Active Substance: INSULIN LISPRO
     Dosage: EVERY MEAL, SLIDING SCALE. DIFFERENT FOR EVERY MEAL.
  3. BYDUREON [Suspect]
     Active Substance: EXENATIDE
     Indication: TYPE 2 DIABETES MELLITUS
     Route: 058
     Dates: start: 201508
  4. LEVEMIR [Concomitant]
     Active Substance: INSULIN DETEMIR
     Dosage: 62 UNITS IN THE MORNING, 64 UNITS AT NIGHT
  5. METFORMIN [Concomitant]
     Active Substance: METFORMIN HYDROCHLORIDE

REACTIONS (5)
  - Product quality issue [Unknown]
  - Injection site haemorrhage [Unknown]
  - Injection site swelling [Unknown]
  - Underdose [Unknown]
  - Injection site nodule [Unknown]

NARRATIVE: CASE EVENT DATE: 20140126
